FAERS Safety Report 21440188 (Version 1)
Quarter: 2022Q4

REPORT INFORMATION
  Report Type: Spontaneous
  Country: CA (occurrence: CA)
  Receive Date: 20221011
  Receipt Date: 20221011
  Transmission Date: 20230113
  Serious: Yes (Hospitalization)
  Sender: FDA-Public Use
  Company Number: CA-JNJFOC-20221007057

PATIENT
  Age: 53 Year
  Sex: Female

DRUGS (3)
  1. TOPAMAX [Suspect]
     Active Substance: TOPIRAMATE
     Indication: Product used for unknown indication
     Route: 048
  2. PHENYTOIN [Concomitant]
     Active Substance: PHENYTOIN
  3. PHENOBARBITAL [Concomitant]
     Active Substance: PHENOBARBITAL

REACTIONS (2)
  - Myelosuppression [Unknown]
  - Anaemia macrocytic [Unknown]
